FAERS Safety Report 4421842-2 (Version None)
Quarter: 2004Q3

REPORT INFORMATION
  Report Type: 
  Country: None (occurrence: None)
  Receive Date: 20040806
  Receipt Date: 20040728
  Transmission Date: 20050211
  Serious: Yes (Hospitalization)
  Sender: FDA-Public Use
  Company Number: US-JNJFOC-20040708058

PATIENT
  Age: 35 Year
  Sex: Male

DRUGS (3)
  1. RISPERDAL CONSTA [Suspect]
     Indication: SCHIZOPHRENIA
     Dosage: 25 MG,  1 IN 2 WEEK, INTRA-MUSCULAR
     Route: 048
     Dates: start: 20040501
  2. RISPERDAL [Suspect]
     Indication: SCHIZOPHRENIA
     Dosage: 5 MG, IN 1 DAY, ORAL
     Route: 048
     Dates: end: 20031001
  3. SYNTHROID (LEVOTHYROXINE SODIUM) TABLETS [Concomitant]

REACTIONS (1)
  - AGGRESSION [None]
